FAERS Safety Report 23527113 (Version 2)
Quarter: 2025Q1

REPORT INFORMATION
  Report Type: Report from Study
  Country: CA (occurrence: CA)
  Receive Date: 20240215
  Receipt Date: 20250214
  Transmission Date: 20250408
  Serious: Yes (Other)
  Sender: CSL BEHRING
  Company Number: CA-BEH-2024168514

PATIENT
  Age: 55 Year
  Sex: Female
  Weight: 83.9 kg

DRUGS (1)
  1. HIZENTRA [Suspect]
     Active Substance: HUMAN IMMUNOGLOBULIN G
     Indication: Primary immunodeficiency syndrome
     Dosage: 12 GRAM, QW
     Route: 065
     Dates: start: 20151123

REACTIONS (10)
  - Interstitial lung disease [Unknown]
  - Injection site cyst [Unknown]
  - Injection site hyperaesthesia [Unknown]
  - Injection site erythema [Unknown]
  - Skin exfoliation [Unknown]
  - Skin burning sensation [Unknown]
  - Injection site warmth [Unknown]
  - Injection site hyperaesthesia [Unknown]
  - Injection site mass [Unknown]
  - Cellulitis [Unknown]
